FAERS Safety Report 5637660-3 (Version None)
Quarter: 2008Q1

REPORT INFORMATION
  Report Type: 
  Country: None (occurrence: None)
  Receive Date: 20080225
  Receipt Date: 20080213
  Transmission Date: 20080703
  Serious: Yes (Other)
  Sender: FDA-Public Use
  Company Number: IE-GENENTECH-256428

PATIENT
  Age: 82 Year
  Sex: Male

DRUGS (4)
  1. AVASTIN [Suspect]
     Indication: MACULAR DEGENERATION
     Dosage: 0.05 ML, UNK
     Route: 031
  2. AVASTIN [Suspect]
     Indication: DETACHMENT OF RETINAL PIGMENT EPITHELIUM
  3. POVIDONE IODINE [Suspect]
     Indication: DRUG USE FOR UNKNOWN INDICATION
     Dosage: 1.25 MG, UNK
     Route: 031
  4. ANTIBIOTICS (NOT SPECIFIED) [Concomitant]
     Indication: DRUG USE FOR UNKNOWN INDICATION

REACTIONS (1)
  - RETINAL HAEMORRHAGE [None]
